FAERS Safety Report 9477155 (Version 1)
Quarter: 2013Q3

REPORT INFORMATION
  Report Type: Spontaneous
  Country: US (occurrence: US)
  Receive Date: 20130826
  Receipt Date: 20130826
  Transmission Date: 20140515
  Serious: Yes (Life-Threatening, Hospitalization, Other)
  Sender: FDA-Public Use
  Company Number: US-BAYER-2013-102306

PATIENT
  Age: 65 Year
  Sex: Female

DRUGS (17)
  1. MOXIFLOXACIN ORAL [Suspect]
     Indication: UPPER RESPIRATORY TRACT INFECTION
     Dosage: 400 MG, DAILY
     Route: 048
  2. ACETYLSALICYLIC ACID({=100 MG) [Suspect]
     Dosage: 81 MG, DAILY
     Route: 048
  3. ACETYLSALICYLIC ACID (} 100 MG) [Suspect]
     Dosage: 325 MG, UNK
     Route: 048
  4. LISINOPRIL [Suspect]
     Dosage: 40 MG, DAILY
     Route: 048
  5. IBUPROFEN [Concomitant]
     Dosage: 600 MG, TID AS NEEDED
     Route: 048
  6. AMLODIPINE [Concomitant]
     Dosage: 5 MG, DAILY
     Route: 048
  7. METOPROLOL [Concomitant]
     Dosage: 12.5 MG, BID
     Route: 048
  8. HYDROCHLOROTHIAZIDE [Concomitant]
     Dosage: 25 MG, DAILY
     Route: 048
  9. SIMVASTATIN [Concomitant]
     Dosage: 80 MG, DAILY
     Route: 048
  10. GLIPIZIDE [Concomitant]
     Dosage: 5 MG, QD
     Route: 048
  11. BUPROPION [Concomitant]
     Dosage: 150 MG, DAILY
     Route: 048
  12. ALPRAZOLAM [Concomitant]
     Dosage: 0.25 MG, DAILY
     Route: 048
  13. METHOCARBAMOL [Concomitant]
     Dosage: 500 MG, DAILY
     Route: 048
  14. CALCIUM WITH VITAMIN D [Concomitant]
     Route: 048
  15. ALBUTEROL [Concomitant]
     Dosage: 2 PUFF(S), QID
     Route: 055
  16. BENZONATATE [Concomitant]
     Dosage: 100 MG, QID
     Route: 048
  17. FOLIC ACID [Concomitant]
     Dosage: 1 MG, DAILY
     Route: 048

REACTIONS (3)
  - Angioedema [Recovered/Resolved]
  - Angioedema [Recovered/Resolved]
  - Haemorrhagic diathesis [None]
